FAERS Safety Report 9019390 (Version 1)
Quarter: 2013Q1

REPORT INFORMATION
  Report Type: Spontaneous
  Country: CH (occurrence: CH)
  Receive Date: 20130118
  Receipt Date: 20130118
  Transmission Date: 20140127
  Serious: Yes (Other)
  Sender: FDA-Public Use
  Company Number: CH-PFIZER INC-2013019105

PATIENT
  Sex: Female

DRUGS (3)
  1. ZOLOFT [Suspect]
     Indication: ANXIETY
     Dosage: 200 MG, 1X/DAY
  2. SEQUASE [Concomitant]
  3. LYRICA [Concomitant]

REACTIONS (2)
  - Drug level increased [Unknown]
  - Drug ineffective [Unknown]
